FAERS Safety Report 26066537 (Version 1)
Quarter: 2025Q4

REPORT INFORMATION
  Report Type: Spontaneous
  Country: US (occurrence: US)
  Receive Date: 20251119
  Receipt Date: 20251119
  Transmission Date: 20260117
  Serious: No
  Sender: NOVO NORDISK
  Company Number: US-NOVOPROD-1431797

PATIENT
  Sex: Male

DRUGS (1)
  1. NOVOLOG [Suspect]
     Active Substance: INSULIN ASPART
     Indication: Product used for unknown indication
     Dosage: 88 IU

REACTIONS (3)
  - Haemorrhage [Unknown]
  - Product container issue [Unknown]
  - Product packaging quantity issue [Unknown]
